FAERS Safety Report 17264189 (Version 1)
Quarter: 2020Q1

REPORT INFORMATION
  Report Type: Spontaneous
  Country: US (occurrence: US)
  Receive Date: 20200113
  Receipt Date: 20200113
  Transmission Date: 20200409
  Serious: Yes (Death, Other)
  Sender: FDA-Public Use
  Company Number: US-GLAXOSMITHKLINE-US2020GSK001580

PATIENT
  Age: 56 Year
  Sex: Male

DRUGS (7)
  1. WARFARIN [Suspect]
     Active Substance: WARFARIN
     Dosage: UNK
     Route: 048
  2. LISINOPRIL. [Suspect]
     Active Substance: LISINOPRIL
     Route: 048
  3. DILTIAZEM. [Suspect]
     Active Substance: DILTIAZEM
     Dosage: UNK
     Route: 048
  4. CARVEDILOL. [Suspect]
     Active Substance: CARVEDILOL
     Dosage: UNK
     Route: 048
  5. RIVAROXABAN [Suspect]
     Active Substance: RIVAROXABAN
     Dosage: UNK
     Route: 048
  6. ALCOHOL. [Suspect]
     Active Substance: ALCOHOL
     Dosage: UNK
     Route: 048
  7. CARBON MONOXIDE [Suspect]
     Active Substance: CARBON MONOXIDE
     Dosage: UNK
     Route: 048

REACTIONS (1)
  - Suspected suicide [Fatal]
